FAERS Safety Report 25062896 (Version 1)
Quarter: 2025Q1

REPORT INFORMATION
  Report Type: Spontaneous
  Country: US (occurrence: None)
  Receive Date: 20250310
  Receipt Date: 20250310
  Transmission Date: 20250409
  Serious: Yes (Other)
  Sender: FDA-CTU
  Company Number: None

PATIENT
  Age: 76 Year
  Sex: Female
  Weight: 96.75 kg

DRUGS (1)
  1. NEXLETOL [Suspect]
     Active Substance: BEMPEDOIC ACID
     Indication: Blood cholesterol increased
     Dosage: FREQUENCY : DAILY;?
     Route: 048
     Dates: start: 20250213, end: 20250216

REACTIONS (6)
  - Muscle spasms [None]
  - Pain [None]
  - Back pain [None]
  - Arthralgia [None]
  - Dysstasia [None]
  - Gait disturbance [None]

NARRATIVE: CASE EVENT DATE: 20250216
